FAERS Safety Report 5029978-2 (Version None)
Quarter: 2006Q2

REPORT INFORMATION
  Report Type: 
  Country: None (occurrence: None)
  Receive Date: 20060620
  Receipt Date: 20060608
  Transmission Date: 20061013
  Serious: Yes (Hospitalization)
  Sender: FDA-Public Use
  Company Number: GB-MERCK-0606GBR00041

PATIENT
  Age: 72 Year
  Sex: Male

DRUGS (3)
  1. COSOPT [Suspect]
     Indication: INTRAOCULAR PRESSURE TEST
     Route: 047
  2. ACETAZOLAMIDE [Suspect]
     Indication: INTRAOCULAR PRESSURE TEST
     Route: 065
  3. LATANOPROST [Suspect]
     Indication: INTRAOCULAR PRESSURE TEST
     Route: 065

REACTIONS (4)
  - DRUG INEFFECTIVE [None]
  - EYE HAEMORRHAGE [None]
  - EYE PAIN [None]
  - VISUAL ACUITY REDUCED [None]
